FAERS Safety Report 4304927-0 (Version None)
Quarter: 2004Q1

REPORT INFORMATION
  Report Type: 
  Country: None (occurrence: None)
  Receive Date: 20040226
  Receipt Date: 20040114
  Transmission Date: 20041129
  Serious: No
  Sender: FDA-Public Use
  Company Number: US-GLAXOSMITHKLINE-A0493281A

PATIENT
  Sex: Female

DRUGS (4)
  1. WELLBUTRIN XL [Suspect]
     Indication: DEPRESSION
     Dosage: 300MG PER DAY
     Route: 048
  2. ESTROVEN [Concomitant]
  3. MULTI-VITAMINS [Concomitant]
  4. ADVAIR DISKUS 100/50 [Concomitant]

REACTIONS (1)
  - TINNITUS [None]
